FAERS Safety Report 6852332-5 (Version None)
Quarter: 2010Q3

REPORT INFORMATION
  Report Type: 
  Country: None (occurrence: None)
  Receive Date: 20100717
  Receipt Date: 20090830
  Transmission Date: 20110219
  Serious: Yes (Hospitalization, Other)
  Sender: FDA-Public Use
  Company Number: US-PFIZER INC-2007094564

PATIENT
  Sex: Female
  Weight: 38.6 kg

DRUGS (10)
  1. CHANTIX [Suspect]
     Indication: SMOKING CESSATION THERAPY
     Dates: start: 20071001
  2. RISPERIDONE [Concomitant]
  3. MORPHINE [Concomitant]
  4. ENALAPRIL MALEATE [Concomitant]
  5. CITALOPRAM HYDROBROMIDE [Concomitant]
  6. LORAZEPAM [Concomitant]
  7. SOMA [Concomitant]
  8. POTASSIUM CHLORIDE [Concomitant]
  9. VITAMINS [Concomitant]
  10. MAGNESIUM [Concomitant]

REACTIONS (4)
  - CLOSTRIDIAL INFECTION [None]
  - DYSPNOEA [None]
  - NAUSEA [None]
  - NIGHTMARE [None]
